FAERS Safety Report 6105879-3 (Version None)
Quarter: 2009Q1

REPORT INFORMATION
  Report Type: 
  Country: None (occurrence: None)
  Receive Date: 20090306
  Receipt Date: 20090223
  Transmission Date: 20090719
  Serious: Yes (Other)
  Sender: FDA-Public Use
  Company Number: DE-PFIZER INC-2009167195

PATIENT

DRUGS (4)
  1. LYRICA [Suspect]
     Dosage: 600 MG
     Route: 048
  2. OXYGESIC [Interacting]
     Dosage: 80 MG, 2X/DAY
  3. ROHYPNOL [Interacting]
     Dosage: 1 MG, 1X/DAY
  4. SAROTEN [Interacting]
     Dosage: 50 MG, 1X/DAY

REACTIONS (3)
  - DRUG INTERACTION [None]
  - PSYCHOTIC DISORDER [None]
  - SOMNOLENCE [None]
